FAERS Safety Report 12859931 (Version 2)
Quarter: 2016Q4

REPORT INFORMATION
  Report Type: Spontaneous
  Country: CN (occurrence: CN)
  Receive Date: 20161018
  Receipt Date: 20161104
  Transmission Date: 20170207
  Serious: Yes (Other)
  Sender: FDA-Public Use
  Company Number: CN-ROCHE-1843232

PATIENT
  Age: 62 Year
  Sex: Male

DRUGS (8)
  1. PREDNISOLONE. [Suspect]
     Active Substance: PREDNISOLONE
     Indication: DIFFUSE LARGE B-CELL LYMPHOMA
     Dosage: DAY 1-4
     Route: 048
  2. HYDROXYDAUNORUBICIN [Suspect]
     Active Substance: DOXORUBICIN
     Indication: DIFFUSE LARGE B-CELL LYMPHOMA
     Route: 065
  3. MABTHERA [Suspect]
     Active Substance: RITUXIMAB
     Indication: DIFFUSE LARGE B-CELL LYMPHOMA
     Route: 041
  4. VINDESINE [Suspect]
     Active Substance: VINDESINE
     Indication: DIFFUSE LARGE B-CELL LYMPHOMA
     Dosage: DAYS 1-4.
     Route: 041
  5. ETOPOSIDE. [Suspect]
     Active Substance: ETOPOSIDE
     Indication: DIFFUSE LARGE B-CELL LYMPHOMA
     Dosage: DAY 1-4
     Route: 041
  6. CYCLOPHOSPHAMIDE. [Suspect]
     Active Substance: CYCLOPHOSPHAMIDE
     Indication: DIFFUSE LARGE B-CELL LYMPHOMA
     Dosage: PER DAY
     Route: 041
  7. EPIRUBICIN [Suspect]
     Active Substance: EPIRUBICIN
     Indication: DIFFUSE LARGE B-CELL LYMPHOMA
     Dosage: PER DAY, DAY 1-4
     Route: 041
  8. ONCOVIN [Suspect]
     Active Substance: VINCRISTINE SULFATE
     Indication: DIFFUSE LARGE B-CELL LYMPHOMA
     Dosage: DAY 1-4
     Route: 041

REACTIONS (3)
  - Agranulocytosis [Unknown]
  - Amylase increased [Recovering/Resolving]
  - Lipase increased [Recovering/Resolving]
